FAERS Safety Report 8487575-0 (Version None)
Quarter: 2012Q3

REPORT INFORMATION
  Report Type: 
  Country: None (occurrence: None)
  Receive Date: 20120705
  Receipt Date: 20120621
  Transmission Date: 20120928
  Serious: Yes (Death, Hospitalization, Other)
  Sender: FDA-Public Use
  Company Number: JP-JNJFOC-20091107921

PATIENT
  Sex: Female
  Weight: 50 kg

DRUGS (23)
  1. DOXORUBICIN HCL [Suspect]
     Dosage: CYCLE 1
     Route: 042
     Dates: start: 20090722, end: 20090722
  2. MUCOSTA [Concomitant]
     Route: 048
     Dates: start: 20090711, end: 20091125
  3. DOXORUBICIN HCL [Suspect]
     Dosage: CYCLE 2
     Route: 042
     Dates: start: 20090817, end: 20090817
  4. FENTANYL-100 [Concomitant]
     Route: 062
     Dates: start: 20090818, end: 20091129
  5. FAMOTIDINE [Concomitant]
     Indication: PROPHYLAXIS
     Route: 042
     Dates: start: 20090722, end: 20090722
  6. MORPHINE HYDROCHLORIDE [Suspect]
     Indication: ILL-DEFINED DISORDER
     Dosage: PRN
     Route: 048
     Dates: start: 20090904
  7. DOXORUBICIN HCL [Suspect]
     Indication: OVARIAN CANCER RECURRENT
     Dosage: CYCLE 4
     Route: 042
     Dates: start: 20100108, end: 20100108
  8. OXYCONTIN [Suspect]
     Indication: ILL-DEFINED DISORDER
     Route: 048
     Dates: start: 20090630, end: 20090731
  9. FENTANYL-100 [Concomitant]
     Indication: ILL-DEFINED DISORDER
     Route: 062
     Dates: start: 20091130
  10. AZULENE [Concomitant]
     Indication: PROPHYLAXIS
     Route: 049
     Dates: start: 20090721, end: 20090830
  11. MAGMITT [Concomitant]
     Route: 048
     Dates: start: 20090711, end: 20091125
  12. SEROTONE [Concomitant]
     Indication: PROPHYLAXIS
     Route: 042
     Dates: start: 20090722, end: 20090722
  13. BETAMETHASONE [Concomitant]
     Indication: PROPHYLAXIS
     Route: 042
     Dates: start: 20090722, end: 20090722
  14. DOXORUBICIN HCL [Suspect]
     Dosage: CYCLE 3
     Route: 042
     Dates: start: 20091016, end: 20091016
  15. LAXOBERON [Concomitant]
     Route: 048
     Dates: start: 20090711, end: 20090907
  16. LENDORMIN [Concomitant]
     Route: 048
     Dates: start: 20090721, end: 20091125
  17. VITAMIN B6 [Concomitant]
     Indication: PROPHYLAXIS
     Route: 048
     Dates: start: 20090721, end: 20090830
  18. LOXONIN [Concomitant]
     Route: 048
     Dates: start: 20090630, end: 20091125
  19. OXYCODONE HYDROCHLORIDE [Concomitant]
     Route: 048
     Dates: start: 20090711, end: 20090903
  20. FENTANYL-100 [Concomitant]
     Route: 062
     Dates: start: 20090731, end: 20090817
  21. LAXOBERON [Concomitant]
     Indication: CONSTIPATION
     Route: 048
     Dates: start: 20090908
  22. RIBOFLAVIN TAB [Concomitant]
     Indication: PROPHYLAXIS
     Route: 048
     Dates: start: 20090721, end: 20090830
  23. GABAPENTIN [Concomitant]
     Route: 048
     Dates: start: 20090711, end: 20090901

REACTIONS (5)
  - INTESTINAL OBSTRUCTION [None]
  - LIVER DISORDER [None]
  - DISSEMINATED INTRAVASCULAR COAGULATION [None]
  - PULMONARY EMBOLISM [None]
  - OVARIAN CANCER [None]
